FAERS Safety Report 6855869-8 (Version None)
Quarter: 2010Q3

REPORT INFORMATION
  Report Type: 
  Country: None (occurrence: None)
  Receive Date: 20100715
  Receipt Date: 20100715
  Transmission Date: 20110219
  Serious: Yes (Hospitalization)
  Sender: FDA-Public Use
  Company Number: None

PATIENT
  Age: 65 Year
  Sex: Male

DRUGS (2)
  1. PREDNISONE [Suspect]
     Indication: UPPER RESPIRATORY TRACT INFECTION
     Dosage: 40 MG EVERY DAY PO
     Route: 048
     Dates: start: 20100501, end: 20100506
  2. METHYLPREDNISOLONE [Suspect]
     Dosage: 125 MG ONCE IV
     Route: 042
     Dates: start: 20100501, end: 20100506

REACTIONS (1)
  - AGITATION [None]
